FAERS Safety Report 17632006 (Version 5)
Quarter: 2022Q1

REPORT INFORMATION
  Report Type: Report from Study
  Country: JP (occurrence: JP)
  Receive Date: 20200406
  Receipt Date: 20220228
  Transmission Date: 20220424
  Serious: Yes (Hospitalization)
  Sender: FDA-Public Use
  Company Number: JP-CELGENE-JPN-20190504764

PATIENT
  Age: 75 Year
  Sex: Female
  Weight: 48.4 kg

DRUGS (14)
  1. ISTODAX [Suspect]
     Active Substance: ROMIDEPSIN
     Indication: Angioimmunoblastic T-cell lymphoma
     Dosage: 20 MILLIGRAM
     Route: 041
     Dates: start: 20190505, end: 20190505
  2. ISTODAX [Suspect]
     Active Substance: ROMIDEPSIN
     Dosage: 20 MILLIGRAM
     Route: 041
     Dates: start: 20190513, end: 20190513
  3. ISTODAX [Suspect]
     Active Substance: ROMIDEPSIN
     Dosage: 10 MILLIGRAM
     Route: 041
     Dates: start: 20190521, end: 20190521
  4. ISTODAX [Suspect]
     Active Substance: ROMIDEPSIN
     Route: 041
     Dates: start: 20190604, end: 20190618
  5. ISTODAX [Suspect]
     Active Substance: ROMIDEPSIN
     Dosage: 10 MILLIGRAM
     Route: 041
     Dates: start: 20190702, end: 20190702
  6. ISTODAX [Suspect]
     Active Substance: ROMIDEPSIN
     Route: 041
     Dates: start: 20190709, end: 20190716
  7. FLUCONAZOLE [Suspect]
     Active Substance: FLUCONAZOLE
     Indication: Infection prophylaxis
     Dosage: 200 MILLIGRAM
     Route: 048
     Dates: start: 20190507, end: 20190515
  8. SULFAMETHOXAZOLE\TRIMETHOPRIM [Concomitant]
     Active Substance: SULFAMETHOXAZOLE\TRIMETHOPRIM
     Indication: Infection prophylaxis
     Dosage: 1 TABLET
     Route: 048
     Dates: start: 201611
  9. DENOSIN [Concomitant]
     Indication: Infection prophylaxis
     Dosage: 500 MILLIGRAM
     Route: 065
     Dates: start: 20190417
  10. DENOSIN [Concomitant]
     Indication: Infection prophylaxis
  11. CEFTRIAXONE [Concomitant]
     Active Substance: CEFTRIAXONE
     Indication: Infection prophylaxis
     Dosage: 2 GRAM
     Route: 065
     Dates: start: 20190430, end: 20190510
  12. CEFTRIAXONE [Concomitant]
     Active Substance: CEFTRIAXONE
     Indication: Infection prophylaxis
     Dosage: UNKNOWN
     Route: 065
     Dates: start: 2019
  13. ALLOPURINOL [Concomitant]
     Active Substance: ALLOPURINOL
     Indication: Prophylaxis
     Dosage: UNKNOWN
     Route: 065
  14. VALGANCICLOVIR [Concomitant]
     Active Substance: VALGANCICLOVIR
     Indication: Infection prophylaxis
     Dosage: UNKNOWN
     Route: 048

REACTIONS (9)
  - Oedema [Recovered/Resolved]
  - Tumour lysis syndrome [Recovered/Resolved]
  - Sepsis [Recovered/Resolved]
  - Pyrexia [Not Recovered/Not Resolved]
  - Sepsis [Not Recovered/Not Resolved]
  - Cytomegalovirus viraemia [Not Recovered/Not Resolved]
  - Angioimmunoblastic T-cell lymphoma [Unknown]
  - Electrocardiogram QT prolonged [Recovered/Resolved]
  - Therapeutic response decreased [Unknown]

NARRATIVE: CASE EVENT DATE: 20190506
